FAERS Safety Report 24888649 (Version 2)
Quarter: 2025Q1

REPORT INFORMATION
  Report Type: Report from Study
  Country: CA (occurrence: CA)
  Receive Date: 20250127
  Receipt Date: 20250131
  Transmission Date: 20250409
  Serious: Yes (Life-Threatening, Hospitalization)
  Sender: CSL BEHRING
  Company Number: CA-BEH-2024169077

PATIENT
  Age: 72 Year
  Sex: Female
  Weight: 58.957 kg

DRUGS (1)
  1. HIZENTRA [Suspect]
     Active Substance: HUMAN IMMUNOGLOBULIN G
     Indication: Primary immunodeficiency syndrome
     Dosage: 10 GRAM, QW
     Route: 065
     Dates: start: 20230311, end: 20240901

REACTIONS (6)
  - Life expectancy shortened [Unknown]
  - Hospice care [Unknown]
  - Lung disorder [Unknown]
  - Therapy cessation [Unknown]
  - Infusion site discharge [Unknown]
  - Incorrect drug administration rate [Unknown]

NARRATIVE: CASE EVENT DATE: 20240901
